FAERS Safety Report 23527010 (Version 1)
Quarter: 2024Q1

REPORT INFORMATION
  Report Type: Spontaneous
  Country: NZ (occurrence: NZ)
  Receive Date: 20240215
  Receipt Date: 20240215
  Transmission Date: 20240410
  Serious: Yes (Other)
  Sender: FDA-Public Use
  Company Number: NZ-002147023-PHHY2019NZ085236

PATIENT
  Sex: Female

DRUGS (8)
  1. IMATINIB [Suspect]
     Active Substance: IMATINIB
     Indication: Chronic myeloid leukaemia
     Dosage: 40 MG, BID
     Route: 065
     Dates: start: 20130110, end: 20140107
  2. IMATINIB [Suspect]
     Active Substance: IMATINIB
     Indication: Fatigue
     Dosage: UNK
     Route: 065
     Dates: start: 201703
  3. IMATINIB [Suspect]
     Active Substance: IMATINIB
     Dosage: 300 MG
     Route: 065
  4. NILOTINIB [Suspect]
     Active Substance: NILOTINIB
     Indication: Chronic myeloid leukaemia
     Dosage: UNK
     Route: 065
     Dates: start: 201505
  5. DASATINIB [Suspect]
     Active Substance: DASATINIB
     Indication: Chronic myeloid leukaemia
     Dosage: UNK
     Route: 065
     Dates: start: 201407
  6. DASATINIB [Suspect]
     Active Substance: DASATINIB
     Dosage: UNK
     Route: 065
     Dates: start: 201506, end: 201601
  7. BOSUTINIB [Suspect]
     Active Substance: BOSUTINIB
     Indication: Chronic myeloid leukaemia
     Dosage: UNK
     Route: 065
     Dates: start: 201607, end: 201702
  8. HYDROXYUREA [Concomitant]
     Active Substance: HYDROXYUREA
     Indication: Product used for unknown indication
     Dosage: UNK
     Route: 065

REACTIONS (6)
  - Inflammatory bowel disease [Unknown]
  - Pulmonary hypertension [Unknown]
  - Cytogenetic analysis abnormal [Unknown]
  - Diarrhoea [Recovered/Resolved]
  - Drug intolerance [Unknown]
  - Rash [Unknown]
